FAERS Safety Report 24196070 (Version 1)
Quarter: 2024Q3

REPORT INFORMATION
  Report Type: Spontaneous
  Country: CN (occurrence: CN)
  Receive Date: 20240809
  Receipt Date: 20240809
  Transmission Date: 20241016
  Serious: Yes (Other)
  Sender: SANDOZ
  Company Number: CN-002147023-NVSC2024CN161371

PATIENT
  Age: 9 Year
  Sex: Male

DRUGS (3)
  1. DEXAMETHASONE\TOBRAMYCIN [Suspect]
     Active Substance: DEXAMETHASONE\TOBRAMYCIN
     Indication: Conjunctivitis
     Dosage: 0.1 ML, TID
     Route: 047
     Dates: start: 20240706, end: 20240712
  2. AZELASTINE HYDROCHLORIDE [Concomitant]
     Active Substance: AZELASTINE HYDROCHLORIDE
     Indication: Conjunctivitis
     Dosage: 0.1 ML, TID
     Route: 047
     Dates: start: 20240706, end: 20240712
  3. POLYVINYL ALCOHOL [Concomitant]
     Active Substance: POLYVINYL ALCOHOL
     Indication: Conjunctivitis
     Dosage: 0.1 ML, QID
     Route: 047
     Dates: start: 20240706, end: 20240712

REACTIONS (4)
  - Erythropsia [Recovered/Resolved]
  - Ocular hypertension [Recovered/Resolved]
  - Vision blurred [Unknown]
  - Ocular discomfort [Unknown]

NARRATIVE: CASE EVENT DATE: 20240712
